FAERS Safety Report 20219415 (Version 1)
Quarter: 2021Q4

REPORT INFORMATION
  Report Type: Spontaneous
  Country: US (occurrence: US)
  Receive Date: 20211222
  Receipt Date: 20211222
  Transmission Date: 20220303
  Serious: Yes (Other)
  Sender: FDA-Public Use
  Company Number: US-BAYER-2021A270238

PATIENT
  Age: 19 Year
  Sex: Male

DRUGS (12)
  1. KOVALTRY [Suspect]
     Active Substance: ANTIHEMOPHILIC FACTOR, HUMAN RECOMBINANT
     Indication: Factor VIII deficiency
     Dosage: 2750 IU, BIW AND PRN FOR PROPHYLAXIS
     Route: 042
  2. KOVALTRY [Suspect]
     Active Substance: ANTIHEMOPHILIC FACTOR, HUMAN RECOMBINANT
     Indication: Prophylaxis
     Dosage: 1750 IU, PRN FOR DAY 1 JOINT BLEED AND DAY 2 AND DAY 4 OF MILD/MODERATE JOINT BLEED
     Route: 042
  3. KOVALTRY [Suspect]
     Active Substance: ANTIHEMOPHILIC FACTOR, HUMAN RECOMBINANT
     Indication: Haemorrhage
     Dosage: 3500 IU, PRN FOR SEVERE BLEED
     Route: 042
  4. KOVALTRY [Suspect]
     Active Substance: ANTIHEMOPHILIC FACTOR, HUMAN RECOMBINANT
     Indication: Haemarthrosis
  5. ASPIRIN [Suspect]
     Active Substance: ASPIRIN
  6. RETIN-A [Concomitant]
     Active Substance: TRETINOIN
  7. HEPARIN LOCK FLUSH [Concomitant]
     Active Substance: HEPARIN SODIUM
  8. LIDOCAINE [Concomitant]
     Active Substance: LIDOCAINE
  9. AMINOCAPROIC ACID [Concomitant]
     Active Substance: AMINOCAPROIC ACID
  10. AMICAR [Concomitant]
     Active Substance: AMINOCAPROIC ACID
  11. SODIUM CHLORIDE [Concomitant]
     Active Substance: SODIUM CHLORIDE
  12. CLINDAMYCIN PHOSPHATE [Concomitant]
     Active Substance: CLINDAMYCIN PHOSPHATE

REACTIONS (3)
  - Haemarthrosis [None]
  - Contusion [None]
  - Drug hypersensitivity [None]
